FAERS Safety Report 8237041-2 (Version None)
Quarter: 2012Q1

REPORT INFORMATION
  Report Type: 
  Country: None (occurrence: None)
  Receive Date: 20120327
  Receipt Date: 20120323
  Transmission Date: 20120608
  Serious: Yes (Hospitalization, Other)
  Sender: FDA-Public Use
  Company Number: PHHY2012ES025417

PATIENT
  Age: 66 Year
  Sex: Female

DRUGS (1)
  1. FEMARA [Suspect]
     Indication: BREAST CANCER METASTATIC
     Dosage: 2.5 MG, DAILY
     Route: 048
     Dates: start: 20000114, end: 20120109

REACTIONS (4)
  - SPLENOMEGALY [None]
  - PORTAL VEIN THROMBOSIS [None]
  - LIVER DISORDER [None]
  - CHOLELITHIASIS [None]
